FAERS Safety Report 14506319 (Version 2)
Quarter: 2018Q2

REPORT INFORMATION
  Report Type: Spontaneous
  Country: JP (occurrence: JP)
  Receive Date: 20180208
  Receipt Date: 20180415
  Transmission Date: 20180711
  Serious: Yes (Other)
  Sender: FDA-Public Use
  Company Number: PHJP2017JP034538

PATIENT
  Sex: Female

DRUGS (2)
  1. TOBI [Suspect]
     Active Substance: TOBRAMYCIN
     Dosage: UNK, QD
     Route: 055
  2. TOBI [Suspect]
     Active Substance: TOBRAMYCIN
     Indication: RESPIRATORY SYMPTOM
     Dosage: UNK
     Route: 055

REACTIONS (2)
  - Concomitant disease aggravated [Unknown]
  - Gastrointestinal haemorrhage [Unknown]
